FAERS Safety Report 4835492-7 (Version None)
Quarter: 2005Q4

REPORT INFORMATION
  Report Type: 
  Country: None (occurrence: None)
  Receive Date: 20051123
  Receipt Date: 20051111
  Transmission Date: 20060501
  Serious: Yes (Hospitalization)
  Sender: FDA-Public Use
  Company Number: NO-JNJFOC-20051102980

PATIENT
  Sex: Female

DRUGS (6)
  1. REMICADE [Suspect]
     Indication: RHEUMATOID ARTHRITIS
     Route: 042
  2. METHOTREXATE [Suspect]
     Indication: RHEUMATOID ARTHRITIS
     Route: 048
  3. MODURETIC MITE [Concomitant]
     Route: 048
  4. MODURETIC MITE [Concomitant]
     Indication: HYPERTENSION
     Dosage: 0.5 DOSE QD
     Route: 048
  5. FOLSYRE [Concomitant]
     Route: 048
  6. KREDEX [Concomitant]
     Indication: HYPERTENSION
     Route: 048

REACTIONS (1)
  - B-CELL LYMPHOMA [None]
